FAERS Safety Report 6453827-9 (Version None)
Quarter: 2009Q4

REPORT INFORMATION
  Report Type: 
  Country: None (occurrence: None)
  Receive Date: 20091124
  Receipt Date: 20091117
  Transmission Date: 20100525
  Serious: Yes (Hospitalization)
  Sender: FDA-Public Use
  Company Number: IT-ABBOTT-09P-083-0608835-00

PATIENT
  Sex: Male

DRUGS (4)
  1. KLACID I.V. [Suspect]
     Indication: PYREXIA
     Route: 042
     Dates: start: 20091113, end: 20091113
  2. AMBISOME [Suspect]
     Indication: PYREXIA
     Route: 042
     Dates: start: 20091113, end: 20091114
  3. TAMIFLU [Concomitant]
     Indication: DRUG USE FOR UNKNOWN INDICATION
     Dates: start: 20091108, end: 20091116
  4. MERREM [Concomitant]
     Indication: DRUG USE FOR UNKNOWN INDICATION
     Dates: start: 20091108, end: 20091116

REACTIONS (1)
  - ERYTHEMA [None]
